FAERS Safety Report 25275474 (Version 3)
Quarter: 2025Q3

REPORT INFORMATION
  Report Type: Report from Study
  Country: US (occurrence: US)
  Receive Date: 20250506
  Receipt Date: 20250828
  Transmission Date: 20251021
  Serious: Yes (Hospitalization, Other)
  Sender: ABBVIE
  Company Number: US-ABBVIE-6261716

PATIENT
  Age: 70 Year
  Sex: Male

DRUGS (1)
  1. RINVOQ [Suspect]
     Active Substance: UPADACITINIB
     Indication: Rheumatoid arthritis
     Route: 048
     Dates: start: 20250418, end: 20250425

REACTIONS (11)
  - Ligament sprain [Unknown]
  - Localised infection [Unknown]
  - Fall [Unknown]
  - Gait inability [Unknown]
  - Multiple fractures [Unknown]
  - Joint dislocation [Unknown]
  - Osteomyelitis [Not Recovered/Not Resolved]
  - Haematoma [Not Recovered/Not Resolved]
  - Wound [Unknown]
  - Arthralgia [Unknown]
  - Toe amputation [Unknown]

NARRATIVE: CASE EVENT DATE: 20250101
